FAERS Safety Report 5987570-7 (Version None)
Quarter: 2008Q4

REPORT INFORMATION
  Report Type: 
  Country: None (occurrence: None)
  Receive Date: 20081209
  Receipt Date: 20081029
  Transmission Date: 20090506
  Serious: Yes (Death)
  Sender: FDA-Public Use
  Company Number: DE-CELGENEUS-THADE200800038

PATIENT
  Sex: Female

DRUGS (13)
  1. THALIDOMIDE PHARMION [Suspect]
     Indication: MULTIPLE MYELOMA
     Route: 048
     Dates: start: 20071227, end: 20080121
  2. NEORECORMON [Concomitant]
     Indication: ANAEMIA
     Route: 058
  3. ACYCLOVIR [Concomitant]
     Indication: PROPHYLAXIS
     Route: 048
     Dates: start: 20071227
  4. ISOSORBIDE DINITRATE [Concomitant]
     Indication: PROPHYLAXIS
     Route: 048
  5. BISOPROLOL FUMARATE [Concomitant]
     Indication: HYPERTENSION
     Route: 048
  6. SIMVASTATIN [Concomitant]
     Indication: HYPERCHOLESTEROLAEMIA
     Route: 048
  7. CLEXANE [Concomitant]
     Indication: PROPHYLAXIS
     Route: 058
  8. TILIDIN [Concomitant]
     Indication: PAIN
     Route: 048
  9. AREDIA [Concomitant]
     Indication: PROPHYLAXIS
     Route: 051
  10. PIRETANIDE [Concomitant]
     Route: 048
  11. NEUPOGEN [Concomitant]
     Indication: NEUTROPENIA
     Route: 058
     Dates: start: 20080115
  12. TAVANIC [Concomitant]
     Indication: INFECTION
     Route: 048
     Dates: end: 20080110
  13. DEXAMETHASONE [Concomitant]
     Indication: INFECTION
     Route: 048
     Dates: start: 20080102, end: 20080105

REACTIONS (2)
  - CARDIAC FAILURE [None]
  - PULMONARY HYPERTENSION [None]
